FAERS Safety Report 6709296-4 (Version None)
Quarter: 2010Q2

REPORT INFORMATION
  Report Type: 
  Country: None (occurrence: None)
  Receive Date: 20100504
  Receipt Date: 20100429
  Transmission Date: 20101027
  Serious: Yes (Hospitalization)
  Sender: FDA-Public Use
  Company Number: US-ELI_LILLY_AND_COMPANY-US201005000058

PATIENT
  Sex: Female

DRUGS (2)
  1. HUMALOG MIX 75/25 [Suspect]
     Indication: TYPE 2 DIABETES MELLITUS
     Dosage: 18 U, EACH MORNING
     Dates: start: 20000101
  2. HUMALOG MIX 75/25 [Suspect]
     Dosage: 13 U, EACH EVENING
     Dates: start: 20000101

REACTIONS (2)
  - FALL [None]
  - UPPER LIMB FRACTURE [None]
